FAERS Safety Report 8477656-X (Version None)
Quarter: 2012Q2

REPORT INFORMATION
  Report Type: 
  Country: None (occurrence: None)
  Receive Date: 20120626
  Receipt Date: 20120626
  Transmission Date: 20120825
  Serious: No
  Sender: FDA-Public Use
  Company Number: None

PATIENT
  Age: 42 Year
  Sex: Male
  Weight: 102.0593 kg

DRUGS (1)
  1. ESCITALOPRAM [Suspect]
     Indication: PANIC ATTACK
     Dosage: 7.5MG QD PO
     Route: 048

REACTIONS (4)
  - PRODUCT SUBSTITUTION ISSUE [None]
  - PANIC ATTACK [None]
  - DYSPHAGIA [None]
  - DRUG INEFFECTIVE [None]
